FAERS Safety Report 4784058-6 (Version None)
Quarter: 2005Q3

REPORT INFORMATION
  Report Type: 
  Country: None (occurrence: None)
  Receive Date: 20050928
  Receipt Date: 20050912
  Transmission Date: 20060218
  Serious: Yes (Hospitalization, Other)
  Sender: FDA-Public Use
  Company Number: USA0508104202

PATIENT
  Age: 77 Year
  Sex: Female
  Weight: 49 kg

DRUGS (3)
  1. FORTEO [Suspect]
     Indication: OSTEOPOROSIS
     Dosage: 20 UG DAY
     Dates: start: 20050408
  2. COUMADIN [Concomitant]
  3. CORTICOSTEROID NOS [Concomitant]

REACTIONS (3)
  - DIVERTICULITIS [None]
  - GASTRITIS [None]
  - HAEMATOCHEZIA [None]
